FAERS Safety Report 7347223-X (Version None)
Quarter: 2011Q1

REPORT INFORMATION
  Report Type: 
  Country: None (occurrence: None)
  Receive Date: 20110311
  Receipt Date: 20110303
  Transmission Date: 20110831
  Serious: Yes (Other)
  Sender: FDA-Public Use
  Company Number: US-PFIZER INC-2010169375

PATIENT
  Sex: Male

DRUGS (1)
  1. SUTENT [Suspect]
     Indication: RENAL CELL CARCINOMA
     Dosage: 50 MG, QD 4 WEEKS ON/2 WEEKS OFF
     Dates: start: 20101115

REACTIONS (2)
  - SKIN EXFOLIATION [None]
  - HAEMOPTYSIS [None]
